FAERS Safety Report 14929617 (Version 1)
Quarter: 2018Q2

REPORT INFORMATION
  Report Type: Spontaneous
  Country: US (occurrence: US)
  Receive Date: 20180504
  Receipt Date: 20180504
  Transmission Date: 20180711
  Serious: No
  Sender: FDA-Public Use
  Company Number: None

PATIENT
  Age: 80 Year
  Sex: Female
  Weight: 86.18 kg

DRUGS (5)
  1. MAGNESIUM [Concomitant]
     Active Substance: MAGNESIUM
  2. VITAMIN D [Concomitant]
     Active Substance: CHOLECALCIFEROL
  3. RAMIPRIL. [Concomitant]
     Active Substance: RAMIPRIL
  4. ALENDRONATE SODIUM. [Suspect]
     Active Substance: ALENDRONATE SODIUM
     Indication: BONE DISORDER
     Route: 048
     Dates: start: 201505, end: 201706
  5. CENTRIUM [Concomitant]

REACTIONS (11)
  - Anal incontinence [None]
  - Vision blurred [None]
  - Night sweats [None]
  - Asthenia [None]
  - Muscle spasms [None]
  - Throat irritation [None]
  - Urinary incontinence [None]
  - Chromaturia [None]
  - Joint swelling [None]
  - Dyspepsia [None]
  - Blindness transient [None]

NARRATIVE: CASE EVENT DATE: 201505
